FAERS Safety Report 10188780 (Version 1)
Quarter: 2014Q2

REPORT INFORMATION
  Report Type: Spontaneous
  Country: US (occurrence: None)
  Receive Date: 20140521
  Receipt Date: 20140521
  Transmission Date: 20141212
  Serious: No
  Sender: FDA-Public Use
  Company Number: None

PATIENT
  Age: 82 Year
  Sex: Male

DRUGS (1)
  1. NEXAVAR 200MG BAYER [Suspect]
     Indication: HEPATIC NEOPLASM
     Route: 048
     Dates: start: 20140304

REACTIONS (4)
  - Alopecia [None]
  - Blister [None]
  - Hearing impaired [None]
  - Unresponsive to stimuli [None]
